FAERS Safety Report 8625956-2 (Version None)
Quarter: 2012Q3

REPORT INFORMATION
  Report Type: 
  Country: None (occurrence: None)
  Receive Date: 20120827
  Receipt Date: 20120112
  Transmission Date: 20120928
  Serious: Yes (Other)
  Sender: FDA-Public Use
  Company Number: US-ROCHE-CID000000002102887

PATIENT
  Sex: Male

DRUGS (6)
  1. AREDIA [Concomitant]
  2. THALIDOMIDE [Concomitant]
  3. PROLEUKIN [Concomitant]
  4. AVASTIN [Suspect]
     Indication: RENAL CANCER
     Dates: start: 20040801
  5. ZOMETA [Concomitant]
  6. TARCEVA [Suspect]
     Indication: RENAL CANCER
     Dates: start: 20041226

REACTIONS (3)
  - DEEP VEIN THROMBOSIS [None]
  - DISEASE PROGRESSION [None]
  - RASH [None]
